FAERS Safety Report 6732283-7 (Version None)
Quarter: 2010Q2

REPORT INFORMATION
  Report Type: 
  Country: None (occurrence: None)
  Receive Date: 20100519
  Receipt Date: 20100517
  Transmission Date: 20101027
  Serious: Yes (Hospitalization)
  Sender: FDA-Public Use
  Company Number: B0653136A

PATIENT
  Sex: Male

DRUGS (7)
  1. AVODART [Suspect]
     Route: 048
  2. MOPRAL [Suspect]
     Indication: DRUG USE FOR UNKNOWN INDICATION
     Route: 048
  3. COUMADIN [Suspect]
     Indication: DRUG USE FOR UNKNOWN INDICATION
     Dosage: 2MG PER DAY
     Route: 048
  4. ALFUZOSIN HCL [Suspect]
     Dosage: 10MG PER DAY
     Route: 048
  5. RISPERDAL [Suspect]
     Indication: DRUG USE FOR UNKNOWN INDICATION
     Route: 048
  6. AUGMENTIN '125' [Concomitant]
     Route: 065
  7. TAVANIC [Concomitant]
     Route: 065

REACTIONS (7)
  - ACUTE GENERALISED EXANTHEMATOUS PUSTULOSIS [None]
  - PETECHIAE [None]
  - RASH PAPULAR [None]
  - RASH PUSTULAR [None]
  - SKIN LESION [None]
  - SKIN PLAQUE [None]
  - WHITE BLOOD CELL COUNT INCREASED [None]
